FAERS Safety Report 4590961-2 (Version None)
Quarter: 2005Q1

REPORT INFORMATION
  Report Type: 
  Country: None (occurrence: None)
  Receive Date: 20050222
  Receipt Date: 20050222
  Transmission Date: 20050727
  Serious: Yes (Hospitalization, Other)
  Sender: FDA-Public Use
  Company Number: None

PATIENT
  Age: 52 Year
  Sex: Male
  Weight: 63.5036 kg

DRUGS (7)
  1. FENTANYL [Suspect]
     Indication: BACK PAIN
     Dosage: 100 MCG/HR
     Dates: start: 20050212
  2. PAXIL [Concomitant]
  3. TRAZODONE HCL [Concomitant]
  4. CLONAZEPAM [Concomitant]
  5. XANAX [Concomitant]
  6. DETROL [Concomitant]
  7. NEXIUM [Concomitant]

REACTIONS (7)
  - AMNESIA [None]
  - CHEST PAIN [None]
  - DISORIENTATION [None]
  - DYSPNOEA [None]
  - LOSS OF CONSCIOUSNESS [None]
  - NAUSEA [None]
  - SPEECH DISORDER [None]
